FAERS Safety Report 10008024 (Version 2)
Quarter: 2014Q1

REPORT INFORMATION
  Report Type: Spontaneous
  Country: JP (occurrence: JP)
  Receive Date: 20140313
  Receipt Date: 20140313
  Transmission Date: 20141002
  Serious: Yes (Other)
  Sender: FDA-Public Use
  Company Number: PHHY2012JP004949

PATIENT
  Age: 58 Year
  Sex: Male

DRUGS (38)
  1. CLOZARIL [Suspect]
     Indication: SCHIZOPHRENIA, PARANOID TYPE
     Dosage: 12.5 MG, UNK
     Route: 048
     Dates: start: 20111214, end: 20111214
  2. CLOZARIL [Suspect]
     Dosage: 25 MG, UNK
     Route: 048
     Dates: start: 20111215, end: 20111217
  3. CLOZARIL [Suspect]
     Dosage: 50 MG, UNK
     Route: 048
     Dates: start: 20111218, end: 20111220
  4. CLOZARIL [Suspect]
     Dosage: 75 MG, UNK
     Route: 048
     Dates: start: 20111221, end: 20111223
  5. CLOZARIL [Suspect]
     Dosage: 100 MG, UNK
     Route: 048
     Dates: start: 20111224, end: 20111226
  6. CLOZARIL [Suspect]
     Dosage: 125 MG, UNK
     Route: 048
     Dates: start: 20111227, end: 20111229
  7. CLOZARIL [Suspect]
     Dosage: 150 MG, UNK
     Route: 048
     Dates: start: 20111230, end: 20120101
  8. CLOZARIL [Suspect]
     Dosage: 175 MG, UNK
     Route: 048
     Dates: start: 20120102, end: 20120111
  9. CLOZARIL [Suspect]
     Dosage: 12.5 MG, UNK
     Route: 048
     Dates: start: 20120125, end: 20120125
  10. CLOZARIL [Suspect]
     Dosage: 25 MG, UNK
     Route: 048
     Dates: start: 20120116, end: 20120130
  11. CLOZARIL [Suspect]
     Dosage: 50 MG, UNK
     Route: 048
     Dates: start: 20120131, end: 20120131
  12. CLOZARIL [Suspect]
     Dosage: 25 MG, UNK
     Route: 048
     Dates: start: 20120203, end: 20120206
  13. CLOZARIL [Suspect]
     Dosage: 50 MG, UNK
     Route: 048
     Dates: start: 20120207, end: 20120214
  14. CLOZARIL [Suspect]
     Dosage: 75 MG, UNK
     Route: 048
     Dates: start: 20120215, end: 20120219
  15. CLOZARIL [Suspect]
     Dosage: 100 MG, UNK
     Route: 048
     Dates: start: 20120220, end: 20120224
  16. CLOZARIL [Suspect]
     Dosage: 125 MG, UNK
     Route: 048
     Dates: start: 20120225, end: 20120229
  17. CLOZARIL [Suspect]
     Dosage: 150 MG, UNK
     Route: 048
     Dates: start: 20120301, end: 20120305
  18. CLOZARIL [Suspect]
     Dosage: 175 MG, UNK
     Route: 048
     Dates: start: 20120306, end: 20120310
  19. CLOZARIL [Suspect]
     Dosage: 200 MG, UNK
     Route: 048
     Dates: start: 20120311
  20. VALPROIC ACID [Suspect]
     Indication: AFFECTIVE DISORDER
  21. VALPROIC ACID [Suspect]
     Dates: start: 201205
  22. RISPERIDONE [Concomitant]
     Dosage: 5 MG, UNK
     Route: 048
     Dates: start: 20111219
  23. RISPERIDONE [Concomitant]
     Dosage: 3 MG, UNK
     Route: 048
  24. RISPERIDONE [Concomitant]
     Dosage: 2 MG, UNK
     Route: 048
  25. RISPERIDONE [Concomitant]
     Dosage: 1 MG, UNK
     Route: 048
  26. RISPERIDONE [Concomitant]
     Dosage: 6 MG, UNK
     Route: 048
  27. RISPERIDONE [Concomitant]
     Dosage: 5 MG, UNK
     Route: 048
  28. RISPERIDONE [Concomitant]
     Dosage: 4 MG, UNK
     Route: 048
  29. RISPERIDONE [Concomitant]
     Dosage: 3 MG, UNK
     Route: 048
  30. RISPERIDONE [Concomitant]
     Dosage: 2 MG, UNK
     Route: 048
  31. RISPERIDONE [Concomitant]
     Dosage: 1 MG, UNK
     Route: 048
     Dates: start: 20120213, end: 20120213
  32. TASMOLIN [Concomitant]
     Indication: SCHIZOPHRENIA, PARANOID TYPE
     Dosage: 4 MG, UNK
     Route: 048
     Dates: start: 20111213
  33. EURODIN [Concomitant]
     Indication: SCHIZOPHRENIA, PARANOID TYPE
     Dosage: 2 MG, UNK
     Route: 048
     Dates: start: 20111213
  34. FLUNITRAZEPAM [Concomitant]
     Indication: SCHIZOPHRENIA, PARANOID TYPE
     Dosage: 2 MG, UNK
     Route: 048
     Dates: start: 20111213
  35. LIMAS [Concomitant]
     Indication: SCHIZOPHRENIA, PARANOID TYPE
     Dosage: 400 MG, UNK
     Route: 048
     Dates: start: 20111213
  36. OMEPRAZOLE [Concomitant]
     Indication: PROPHYLAXIS
     Dosage: 20 MG, UNK
     Route: 048
     Dates: start: 20111213
  37. MAGNESIUM OXIDE [Concomitant]
     Indication: SCHIZOPHRENIA, PARANOID TYPE
     Dosage: 1.67 G, UNK
     Route: 048
     Dates: start: 20111213
  38. MUCOSTA [Concomitant]
     Indication: PROPHYLAXIS
     Dosage: 100 MG, UNK
     Route: 048
     Dates: start: 20120202, end: 20120215

REACTIONS (14)
  - Abnormal behaviour [Unknown]
  - Self injurious behaviour [Unknown]
  - Eosinophil count increased [Unknown]
  - White blood cell count decreased [Unknown]
  - Drug ineffective [Unknown]
  - Pneumonia [Recovered/Resolved]
  - Pyrexia [Unknown]
  - Cough [Unknown]
  - Oropharyngeal pain [Unknown]
  - Hyperammonaemia [Recovered/Resolved]
  - Restlessness [Unknown]
  - Eating disorder [Unknown]
  - Insomnia [Unknown]
  - Psychiatric symptom [Unknown]
